FAERS Safety Report 19756603 (Version 1)
Quarter: 2021Q3

REPORT INFORMATION
  Report Type: Spontaneous
  Country: SE (occurrence: SE)
  Receive Date: 20210827
  Receipt Date: 20210827
  Transmission Date: 20211014
  Serious: Yes (Hospitalization, Disabling)
  Sender: FDA-Public Use
  Company Number: NVSC2021SE191181

PATIENT
  Age: 61 Year
  Sex: Male
  Weight: 96 kg

DRUGS (1)
  1. FUROSEMID HEXAL 40 MG TABLETTER [Suspect]
     Active Substance: FUROSEMIDE
     Indication: CUTANEOUS VASCULITIS
     Dosage: 40 MG 2?3 TABLETTER DAG)
     Route: 048
     Dates: start: 20210127, end: 20210206

REACTIONS (1)
  - Skin ulcer [Recovered/Resolved with Sequelae]

NARRATIVE: CASE EVENT DATE: 20210206
